FAERS Safety Report 18241888 (Version 1)
Quarter: 2020Q3

REPORT INFORMATION
  Report Type: Spontaneous
  Country: US (occurrence: US)
  Receive Date: 20200908
  Receipt Date: 20200908
  Transmission Date: 20201103
  Serious: No
  Sender: FDA-Public Use
  Company Number: None

PATIENT
  Age: 59 Year
  Sex: Female
  Weight: 82.7 kg

DRUGS (19)
  1. ASPIRIN 81 [Concomitant]
     Active Substance: ASPIRIN
  2. INDOMETHACIN. [Concomitant]
     Active Substance: INDOMETHACIN
  3. METOPROLOL SUCCINATE ER [Concomitant]
     Active Substance: METOPROLOL SUCCINATE
  4. VITAMIN C [Concomitant]
     Active Substance: ASCORBIC ACID
  5. CYANOCOBALAMIN. [Concomitant]
     Active Substance: CYANOCOBALAMIN
  6. GABAPENTIN. [Concomitant]
     Active Substance: GABAPENTIN
  7. CAPECITABINE. [Suspect]
     Active Substance: CAPECITABINE
     Indication: OVARIAN CANCER
     Route: 048
     Dates: start: 20200205, end: 20200908
  8. ANASTROZOLE. [Concomitant]
     Active Substance: ANASTROZOLE
  9. CHLORZOXAZONE. [Concomitant]
     Active Substance: CHLORZOXAZONE
  10. DULOXETINE HCL [Concomitant]
     Active Substance: DULOXETINE HYDROCHLORIDE
  11. LORAZEPAM. [Concomitant]
     Active Substance: LORAZEPAM
  12. VENTOLIN HFA [Concomitant]
     Active Substance: ALBUTEROL SULFATE
  13. PROCHLORPERAZINE MALEATE. [Concomitant]
     Active Substance: PROCHLORPERAZINE MALEATE
  14. HYDROCODONE?ACETAMINOPHEN [Concomitant]
     Active Substance: ACETAMINOPHEN\HYDROCODONE
  15. ONDANSETRON HCL [Concomitant]
     Active Substance: ONDANSETRON HYDROCHLORIDE
  16. VITAMIN D (CHOLECALCIFEROL) [Concomitant]
     Active Substance: CHOLECALCIFEROL
  17. LASIX [Concomitant]
     Active Substance: FUROSEMIDE
  18. MAGNESIUM [Concomitant]
     Active Substance: MAGNESIUM
  19. ENOXAPARIN SODIUM. [Concomitant]
     Active Substance: ENOXAPARIN SODIUM

REACTIONS (1)
  - Disease progression [None]

NARRATIVE: CASE EVENT DATE: 20200908
